FAERS Safety Report 7938122-0 (Version None)
Quarter: 2011Q4

REPORT INFORMATION
  Report Type: 
  Country: None (occurrence: None)
  Receive Date: 20111123
  Receipt Date: 20111020
  Transmission Date: 20120403
  Serious: No
  Sender: FDA-Public Use
  Company Number: US-BRISTOL-MYERS SQUIBB COMPANY-15985971

PATIENT
  Age: 65 Year
  Sex: Female
  Weight: 60 kg

DRUGS (7)
  1. ONGLYZA [Suspect]
     Indication: TYPE 2 DIABETES MELLITUS
     Dosage: INITIALLY TAKEN 5MG,THEN1/2 TAB PER DAY,THEN 1/4TAB EVERY OTHER DAY. INTER DATE: 31MAY11.
     Dates: start: 20110324
  2. VERAPAMIL [Suspect]
  3. SIMVASTATIN [Suspect]
  4. XYZAL [Suspect]
  5. ACETYLSALICYLIC ACID SRT [Suspect]
  6. VITAMIN D [Suspect]
     Dosage: 1DF: 5000U.
  7. GABAPENTIN [Suspect]

REACTIONS (5)
  - HEADACHE [None]
  - IRRITABILITY [None]
  - BURNING SENSATION [None]
  - INSOMNIA [None]
  - MOOD SWINGS [None]
